FAERS Safety Report 6696417-5 (Version None)
Quarter: 2010Q2

REPORT INFORMATION
  Report Type: 
  Country: None (occurrence: None)
  Receive Date: 20100421
  Receipt Date: 20100420
  Transmission Date: 20101027
  Serious: No
  Sender: FDA-Public Use
  Company Number: 009064

PATIENT
  Age: 35 Year
  Sex: Male
  Weight: 51 kg

DRUGS (6)
  1. PLETAL [Suspect]
     Indication: MOYAMOYA DISEASE
     Dosage: 100 MG, BID, ORAL
     Route: 048
     Dates: start: 20080304, end: 20080422
  2. TAKEPRON (LANSOPRAZOLE) TABLET [Concomitant]
  3. ALEVIATIN (PHENYTOIN) INJECTION [Concomitant]
  4. NORVASC [Concomitant]
  5. BLOPRESS (CANDESARTAN CILEXETIL) TABLET [Concomitant]
  6. RADICUT (EDARAVONE) INJECTION [Concomitant]

REACTIONS (16)
  - ACALCULIA [None]
  - AGNOSIA [None]
  - BRAIN COMPRESSION [None]
  - BRAIN OEDEMA [None]
  - CEREBRAL HYPERPERFUSION SYNDROME [None]
  - CEREBRAL INFARCTION [None]
  - CEREBRAL ISCHAEMIA [None]
  - DYSLALIA [None]
  - HEADACHE [None]
  - HEPATIC FUNCTION ABNORMAL [None]
  - HYPOAESTHESIA [None]
  - MUSCLE HAEMORRHAGE [None]
  - MUSCLE SWELLING [None]
  - NEUROLOGICAL SYMPTOM [None]
  - POST PROCEDURAL HAEMATOMA [None]
  - VISUAL FIELD DEFECT [None]
